FAERS Safety Report 6411565-2 (Version None)
Quarter: 2009Q4

REPORT INFORMATION
  Report Type: 
  Country: None (occurrence: None)
  Receive Date: 20091023
  Receipt Date: 20091014
  Transmission Date: 20100525
  Serious: Yes (Other)
  Sender: FDA-Public Use
  Company Number: US-JNJFOC-20091005001

PATIENT
  Sex: Female
  Weight: 58.97 kg

DRUGS (3)
  1. RISPERIDONE [Suspect]
     Indication: HALLUCINATION
     Route: 048
  2. RISPERIDONE [Suspect]
     Route: 048
  3. ALEVE [Concomitant]
     Indication: PAIN
     Route: 048

REACTIONS (7)
  - ABDOMINAL DISCOMFORT [None]
  - COGNITIVE DISORDER [None]
  - CONFUSIONAL STATE [None]
  - CONSTIPATION [None]
  - CRYING [None]
  - DEPRESSION [None]
  - INCONTINENCE [None]
